FAERS Safety Report 9248106 (Version 3)
Quarter: 2013Q2

REPORT INFORMATION
  Report Type: Spontaneous
  Country: US (occurrence: US)
  Receive Date: 20130423
  Receipt Date: 20130508
  Transmission Date: 20140414
  Serious: No
  Sender: FDA-Public Use
  Company Number: US-PFIZER INC-2013125404

PATIENT
  Age: 76 Year
  Sex: Female
  Weight: 104 kg

DRUGS (13)
  1. CELEBREX [Suspect]
     Indication: RHEUMATOID ARTHRITIS
     Dosage: 200 MG DAILY
     Dates: start: 201303, end: 201304
  2. CELEBREX [Suspect]
     Indication: PAIN
  3. DICLOFENAC SODIUM [Suspect]
     Indication: RHEUMATOID ARTHRITIS
     Dosage: 75 MG, 2X/DAY
     Route: 048
     Dates: start: 201301, end: 201301
  4. DICLOFENAC SODIUM [Suspect]
     Indication: PAIN
  5. GLIPIZIDE [Concomitant]
     Indication: DIABETES MELLITUS
     Dosage: 5 MG, 2X/DAY
  6. LISINOPRIL [Concomitant]
     Indication: HYPERTENSION
     Dosage: 20 MG, 1X/DAY
     Route: 048
  7. HYDROCHLOROTHIAZIDE [Concomitant]
     Indication: HYPERTENSION
     Dosage: 25 MG, 1X/DAY
  8. HYDROCODONE W/ACETAMINOPHEN [Concomitant]
     Indication: PAIN
     Dosage: 1 TO 2 TABLETS OF 10/325 MG EACH EVERY 8 HOURS AS NEEDED
     Route: 048
  9. HYDROCODONE W/ACETAMINOPHEN [Concomitant]
     Indication: RHEUMATOID ARTHRITIS
  10. ALPRAZOLAM [Concomitant]
     Indication: NERVOUS SYSTEM DISORDER
     Dosage: 0.25MG, 1 OR 2 TABLET AS NEEDED
  11. OMEPRAZOLE [Concomitant]
     Indication: GASTRIC DISORDER
     Dosage: 20 MG, AS NEEDED
  12. CYMBALTA [Concomitant]
     Indication: DEPRESSION
     Dosage: 30 MG, 1X/DAY
  13. ANASTROZOLE [Concomitant]
     Indication: NEOPLASM PROPHYLAXIS
     Dosage: 1 MG, 1X/DAY

REACTIONS (2)
  - Drug ineffective [Unknown]
  - Diarrhoea [Recovered/Resolved]
